FAERS Safety Report 5606731-X (Version None)
Quarter: 2008Q1

REPORT INFORMATION
  Report Type: 
  Country: None (occurrence: None)
  Receive Date: 20080129
  Receipt Date: 20080117
  Transmission Date: 20080703
  Serious: Yes (Other)
  Sender: FDA-Public Use
  Company Number: HR-PFIZER INC-2008005965

PATIENT
  Sex: Female
  Weight: 66 kg

DRUGS (3)
  1. MEDROL [Suspect]
     Indication: PNEUMONIA
     Route: 048
  2. AERIUS [Interacting]
     Route: 048
     Dates: start: 20070924, end: 20071010
  3. ORMIDOL [Concomitant]
     Route: 048

REACTIONS (2)
  - DRUG INTERACTION [None]
  - HEPATITIS [None]
